FAERS Safety Report 9250255 (Version 2)
Quarter: 2013Q2

REPORT INFORMATION
  Report Type: Report from Study
  Country: CA (occurrence: CA)
  Receive Date: 20130424
  Receipt Date: 20130618
  Transmission Date: 20140414
  Serious: Yes (Other)
  Sender: FDA-Public Use
  Company Number: CA-ROCHE-1146984

PATIENT
  Age: 44 Year
  Sex: Female
  Weight: 88.9 kg

DRUGS (13)
  1. RITUXAN [Suspect]
     Indication: RHEUMATOID ARTHRITIS
     Route: 042
     Dates: start: 20121015
  2. DIPHENHYDRAMINE HCL [Concomitant]
     Indication: PREMEDICATION
     Route: 048
     Dates: start: 20121015, end: 20121015
  3. ACETAMINOPHEN [Concomitant]
     Indication: PREMEDICATION
     Route: 048
     Dates: start: 20121015
  4. ALEVE [Concomitant]
  5. ZOPICLONE [Concomitant]
  6. COVERSYL [Concomitant]
  7. EFFEXOR [Concomitant]
  8. GLUMETZA [Concomitant]
  9. FOLIC ACID [Concomitant]
  10. METHYLPREDNISOLONE [Concomitant]
     Indication: PREMEDICATION
     Route: 042
     Dates: start: 20121015
  11. METHOTREXATE [Concomitant]
  12. ATORVASTATIN CALCIUM [Concomitant]
  13. REACTINE (CANADA) [Concomitant]
     Indication: PREMEDICATION
     Route: 065
     Dates: start: 20121029

REACTIONS (5)
  - Depression [Not Recovered/Not Resolved]
  - Infusion related reaction [Recovered/Resolved]
  - Alopecia [Not Recovered/Not Resolved]
  - Influenza like illness [Recovered/Resolved]
  - Dysuria [Recovering/Resolving]
